FAERS Safety Report 16361412 (Version 1)
Quarter: 2019Q2

REPORT INFORMATION
  Report Type: Spontaneous
  Country: GB (occurrence: GB)
  Receive Date: 20190528
  Receipt Date: 20190528
  Transmission Date: 20190711
  Serious: Yes (Hospitalization)
  Sender: FDA-Public Use
  Company Number: GB-MYLANLABS-2019M1049303

PATIENT
  Age: 22 Year
  Sex: Female

DRUGS (1)
  1. BETAMETHASONE. [Suspect]
     Active Substance: BETAMETHASONE
     Indication: PRODUCT USED FOR UNKNOWN INDICATION
     Route: 030

REACTIONS (4)
  - Maternal exposure during pregnancy [Recovered/Resolved]
  - Starvation ketoacidosis [Recovered/Resolved]
  - Condition aggravated [Recovered/Resolved]
  - Metabolic acidosis [Recovered/Resolved]
